FAERS Safety Report 9985175 (Version 1)
Quarter: 2014Q1

REPORT INFORMATION
  Report Type: Spontaneous
  Country: PR (occurrence: PR)
  Receive Date: 20140307
  Receipt Date: 20140307
  Transmission Date: 20141002
  Serious: No
  Sender: FDA-Public Use
  Company Number: PR-ABBVIE-14P-131-1186108-00

PATIENT
  Age: 56 Year
  Sex: Male
  Weight: 108.96 kg

DRUGS (21)
  1. HUMIRA [Suspect]
     Indication: RHEUMATOID ARTHRITIS
     Route: 058
     Dates: start: 201008, end: 201308
  2. HUMIRA [Suspect]
     Route: 058
     Dates: start: 201308, end: 201312
  3. CLARITIN [Concomitant]
     Indication: SINUSITIS
     Route: 048
  4. ZANTAC [Concomitant]
     Indication: GASTRITIS
     Route: 048
  5. AMBIEN [Concomitant]
     Indication: PRODUCT USED FOR UNKNOWN INDICATION
     Route: 048
  6. TYLENOL [Concomitant]
     Indication: PRODUCT USED FOR UNKNOWN INDICATION
  7. VITAMIN A [Concomitant]
     Indication: PRODUCT USED FOR UNKNOWN INDICATION
     Dosage: 25,000
     Route: 048
  8. VITAMIN B12 [Concomitant]
     Indication: PRODUCT USED FOR UNKNOWN INDICATION
     Route: 048
  9. FOLIC ACID [Concomitant]
     Indication: PRODUCT USED FOR UNKNOWN INDICATION
     Route: 048
  10. MIACINA [Concomitant]
     Indication: PRODUCT USED FOR UNKNOWN INDICATION
     Route: 048
  11. OMEGA 3 [Concomitant]
     Indication: PRODUCT USED FOR UNKNOWN INDICATION
     Dosage: 1000
  12. FINUS ACID [Concomitant]
     Indication: PRODUCT USED FOR UNKNOWN INDICATION
     Route: 048
  13. AVAPRO [Concomitant]
     Indication: PROPHYLAXIS
     Route: 048
  14. LIPITOR [Concomitant]
     Indication: BLOOD CHOLESTEROL INCREASED
     Route: 048
     Dates: start: 2004
  15. LIPITOR [Concomitant]
     Route: 048
     Dates: start: 2004, end: 2010
  16. EFFIENT [Concomitant]
     Indication: ANTICOAGULANT THERAPY
     Route: 048
  17. METOPROLOL [Concomitant]
     Indication: PROPHYLAXIS
     Route: 048
     Dates: start: 2004
  18. METHOTREXATE [Concomitant]
     Indication: RHEUMATOID ARTHRITIS
     Route: 050
  19. PROTONIX [Concomitant]
     Indication: GASTRITIS
     Route: 048
  20. HYDROCHLOROTHIAZIDE [Concomitant]
     Indication: DIURETIC THERAPY
     Route: 048
  21. MUCINEX [Concomitant]
     Indication: SINUSITIS
     Route: 048

REACTIONS (1)
  - Pustular psoriasis [Recovering/Resolving]
